FAERS Safety Report 5118815-3 (Version None)
Quarter: 2006Q3

REPORT INFORMATION
  Report Type: 
  Country: None (occurrence: None)
  Receive Date: 20060927
  Receipt Date: 20060911
  Transmission Date: 20061208
  Serious: Yes (Hospitalization)
  Sender: FDA-Public Use
  Company Number: TRP_0825_2006

PATIENT
  Age: 44 Year
  Sex: Female

DRUGS (3)
  1. RIBASPHERE [Suspect]
     Dosage: 600 MG QDAY PO
     Route: 048
     Dates: start: 20060222, end: 20060815
  2. PEGASYS [Suspect]
     Dosage: 180 MCG UNK SC
     Route: 048
     Dates: start: 20060222, end: 20060815
  3. COPEGUS [Suspect]
     Indication: HEPATITIS C
     Dosage: 600 MG QDAY PO
     Route: 048
     Dates: start: 20060222, end: 20060815

REACTIONS (3)
  - ANAEMIA [None]
  - CHEST PAIN [None]
  - RED BLOOD CELL ABNORMALITY [None]
